FAERS Safety Report 18459744 (Version 9)
Quarter: 2022Q1

REPORT INFORMATION
  Report Type: Report from Study
  Country: CL (occurrence: CL)
  Receive Date: 20201103
  Receipt Date: 20220223
  Transmission Date: 20220423
  Serious: Yes (Death, Life-Threatening, Other)
  Sender: FDA-Public Use
  Company Number: NVSC2018CL011797

PATIENT
  Age: 71 Year
  Sex: Female
  Weight: 81 kg

DRUGS (5)
  1. KISQALI [Suspect]
     Active Substance: RIBOCICLIB
     Indication: Breast cancer
     Dosage: 600 MG, QD
     Route: 048
     Dates: start: 20181029
  2. KISQALI [Suspect]
     Active Substance: RIBOCICLIB
     Dosage: 600 MG
     Route: 048
     Dates: end: 20190221
  3. KISQALI [Suspect]
     Active Substance: RIBOCICLIB
     Dosage: 600 MG
     Route: 048
     Dates: end: 20190404
  4. KISQALI [Suspect]
     Active Substance: RIBOCICLIB
     Dosage: UNK
     Route: 065
     Dates: start: 20200302
  5. KISQALI [Suspect]
     Active Substance: RIBOCICLIB
     Dosage: UNK
     Route: 048
     Dates: start: 20200323

REACTIONS (38)
  - Death [Fatal]
  - Neutrophil count decreased [Unknown]
  - Neutropenia [Unknown]
  - Haemoglobin decreased [Unknown]
  - White blood cell count decreased [Unknown]
  - Metastases to spine [Unknown]
  - Malignant neoplasm progression [Unknown]
  - Full blood count abnormal [Unknown]
  - Laboratory test abnormal [Not Recovered/Not Resolved]
  - Mean cell volume increased [Unknown]
  - Blood potassium increased [Unknown]
  - Blood glucose increased [Unknown]
  - Anisochromia [Unknown]
  - Haemoglobin distribution width increased [Unknown]
  - Platelet morphology abnormal [Unknown]
  - Excessive granulation tissue [Unknown]
  - Mean cell haemoglobin increased [Unknown]
  - Erythroblast count [Unknown]
  - Hypochromasia [Unknown]
  - Haematocrit decreased [Unknown]
  - Red blood cell sedimentation rate increased [Unknown]
  - Macrocytosis [Unknown]
  - Rouleaux formation [Unknown]
  - Poikilocytosis [Unknown]
  - Red blood cell count decreased [Unknown]
  - Anisocytosis [Unknown]
  - Polychromasia [Unknown]
  - Elliptocytosis [Unknown]
  - Red cell distribution width increased [Unknown]
  - Granulocytosis [Unknown]
  - Blood alkaline phosphatase increased [Unknown]
  - Platelet count decreased [Unknown]
  - Monocyte count decreased [Unknown]
  - White blood cell count increased [Unknown]
  - Scar [Unknown]
  - Left atrial enlargement [Unknown]
  - Lymphocyte count decreased [Unknown]
  - Back pain [Unknown]

NARRATIVE: CASE EVENT DATE: 20181112
